FAERS Safety Report 19345930 (Version 1)
Quarter: 2021Q2

REPORT INFORMATION
  Report Type: Spontaneous
  Country: US (occurrence: US)
  Receive Date: 20210531
  Receipt Date: 20210531
  Transmission Date: 20210717
  Serious: Yes (Other)
  Sender: FDA-Public Use
  Company Number: US-PURDUE-USA-2020-0193953

PATIENT
  Sex: Male

DRUGS (7)
  1. VICODIN [Suspect]
     Active Substance: ACETAMINOPHEN\HYDROCODONE BITARTRATE
     Indication: LOWER LIMB FRACTURE
     Dosage: UNK
     Route: 065
  2. HYDROMORPHONE TABLET (RHODES) [Suspect]
     Active Substance: HYDROMORPHONE
     Indication: LOWER LIMB FRACTURE
     Dosage: UNK
     Route: 048
  3. HYDROMORPHONE HCL ORAL SOLUTION (RHODES) [Suspect]
     Active Substance: HYDROMORPHONE HYDROCHLORIDE
     Indication: LOWER LIMB FRACTURE
     Dosage: UNK
     Route: 048
  4. PERCOCET                           /00446701/ [Suspect]
     Active Substance: ACETAMINOPHEN\OXYCODONE HYDROCHLORIDE\OXYCODONE TEREPHTHALATE
     Indication: LOWER LIMB FRACTURE
     Dosage: UNK
     Route: 065
  5. OXYCODONE HCL CR TABLETS (SIMILAR TO NDA 22?272) [Suspect]
     Active Substance: OXYCODONE HYDROCHLORIDE
     Indication: LOWER LIMB FRACTURE
     Dosage: UNK
     Route: 048
  6. DILAUDID [Suspect]
     Active Substance: HYDROMORPHONE HYDROCHLORIDE
     Indication: LOWER LIMB FRACTURE
     Dosage: UNK
     Route: 048
  7. TRAMADOL. [Suspect]
     Active Substance: TRAMADOL
     Indication: LOWER LIMB FRACTURE
     Dosage: UNK
     Route: 065

REACTIONS (2)
  - Overdose [Unknown]
  - Drug dependence [Unknown]
